FAERS Safety Report 9813462 (Version 1)
Quarter: 2014Q1

REPORT INFORMATION
  Report Type: Spontaneous
  Country: GB (occurrence: GB)
  Receive Date: 20140113
  Receipt Date: 20140113
  Transmission Date: 20141002
  Serious: Yes (Life-Threatening, Hospitalization, Other)
  Sender: FDA-Public Use
  Company Number: GB-B.I. PHARMACEUTICALS,INC./RIDGEFIELD-2014-BI-01339UK

PATIENT
  Age: 76 Year
  Sex: Male
  Weight: 70 kg

DRUGS (10)
  1. GAVISCON [Concomitant]
  2. LOSARTAN [Concomitant]
  3. MORPHINE SULFATE [Concomitant]
  4. OMEPRAZOLE [Concomitant]
  5. TADALAFIL [Concomitant]
  6. MELOXICAM [Suspect]
     Indication: PAIN
     Dosage: 7.5 MG
     Route: 048
     Dates: start: 20140102, end: 20140103
  7. XARELTO [Suspect]
     Indication: ATRIAL FIBRILLATION
     Dosage: 20 MG
     Route: 048
     Dates: start: 20131001, end: 20140103
  8. DOXAZOSIN [Concomitant]
  9. FUROSEMIDE [Concomitant]
  10. FYBOGEL [Concomitant]

REACTIONS (4)
  - Vertigo [Unknown]
  - Cerebral haemorrhage [Not Recovered/Not Resolved]
  - Nystagmus [Unknown]
  - Vomiting [Unknown]
